FAERS Safety Report 5264777-8 (Version None)
Quarter: 2007Q1

REPORT INFORMATION
  Report Type: 
  Country: None (occurrence: None)
  Receive Date: 20061124
  Receipt Date: 20040311
  Transmission Date: 20070707
  Serious: Yes (Hospitalization)
  Sender: FDA-Public Use
  Company Number: 2004UW04662

PATIENT
  Age: 61 Year
  Sex: Female
  Weight: 90.7194 kg

DRUGS (6)
  1. TENORMIN [Suspect]
     Indication: HYPERTENSION
     Dosage: 25 MG QD PO
     Route: 048
     Dates: start: 20010101
  2. TENORMIN [Suspect]
     Indication: HYPERTENSION
     Dosage: 50 MG QD PO
     Route: 048
     Dates: start: 20010101
  3. ASPIRIN [Concomitant]
  4. CALCIUM [Concomitant]
  5. VITAMIN E [Concomitant]
  6. VITAMIN B COMPLEX CAP [Concomitant]

REACTIONS (1)
  - ATRIAL FIBRILLATION [None]
